FAERS Safety Report 15398268 (Version 1)
Quarter: 2018Q3

REPORT INFORMATION
  Report Type: Spontaneous
  Country: IT (occurrence: IT)
  Receive Date: 20180918
  Receipt Date: 20180918
  Transmission Date: 20181010
  Serious: Yes (Other)
  Sender: FDA-Public Use
  Company Number: IT-SA-2018SA255417

PATIENT
  Age: 83 Year
  Sex: Female
  Weight: 55 kg

DRUGS (14)
  1. OLEVIA [Concomitant]
     Active Substance: OMEGA-3-ACID ETHYL ESTERS
     Dosage: UNK, UNK
  2. PANTOPRAZOLE [Concomitant]
     Active Substance: PANTOPRAZOLE
     Dosage: UNK, UNK
  3. AMLODIPINE [Concomitant]
     Active Substance: AMLODIPINE BESYLATE
     Dosage: UNK, UNK
  4. FOLIDEX [Concomitant]
     Active Substance: FOLIC ACID
     Dosage: UNK, UNK
  5. BISOPROLOL FUMARATE. [Concomitant]
     Active Substance: BISOPROLOL FUMARATE
  6. ENOXAPARIN SODIUM. [Suspect]
     Active Substance: ENOXAPARIN SODIUM
     Indication: LYMPHOEDEMA
     Dosage: 4000 KIU, QD
     Route: 058
     Dates: start: 20180824, end: 20180828
  7. AMOXICILLIN TRIHYDRATE/POTASSIUM CLAVULANATE [Suspect]
     Active Substance: AMOXICILLIN\CLAVULANATE POTASSIUM
     Indication: ERYSIPELAS
     Dosage: UNK UNK, UNK
     Route: 048
     Dates: start: 20180824, end: 20180828
  8. IDEOS [Concomitant]
     Active Substance: CALCIUM CARBONATE\CHOLECALCIFEROL
  9. CARDIOASPIRIN [Concomitant]
     Active Substance: ASPIRIN
     Dosage: UNK, UNK
  10. XANAX [Concomitant]
     Active Substance: ALPRAZOLAM
     Dosage: UNK, UNK
  11. DIBASE [Concomitant]
     Active Substance: CHOLECALCIFEROL
     Dosage: UNK, UNK
  12. ATORVASTATIN [Concomitant]
     Active Substance: ATORVASTATIN
     Dosage: UNK UNK, UNK
  13. VALSARTAN. [Concomitant]
     Active Substance: VALSARTAN
     Dosage: UNK, UNK
  14. MIRTAZAPINE. [Concomitant]
     Active Substance: MIRTAZAPINE
     Dosage: UNK, UNK

REACTIONS (2)
  - Diarrhoea [Recovering/Resolving]
  - Rash [Recovering/Resolving]

NARRATIVE: CASE EVENT DATE: 20180827
